FAERS Safety Report 4291168-9 (Version None)
Quarter: 2004Q1

REPORT INFORMATION
  Report Type: 
  Country: None (occurrence: None)
  Receive Date: 20040211
  Receipt Date: 20040108
  Transmission Date: 20041129
  Serious: Yes (Other)
  Sender: FDA-Public Use
  Company Number: 200410229GDDC

PATIENT
  Age: 30 Year
  Sex: Male
  Weight: 90 kg

DRUGS (2)
  1. LANTUS [Suspect]
     Indication: DIABETES MELLITUS INSULIN-DEPENDENT
     Dosage: DOSE UNIT: UNITS
     Route: 058
     Dates: start: 20031202, end: 20040102
  2. NOVORAPID [Concomitant]
     Indication: DIABETES MELLITUS INSULIN-DEPENDENT
     Dosage: DOSE UNIT: UNITS
     Route: 058

REACTIONS (6)
  - AMNESIA [None]
  - COGNITIVE DISORDER [None]
  - DYSPHAGIA [None]
  - HYPOGLYCAEMIA [None]
  - MOOD SWINGS [None]
  - PERSONALITY CHANGE [None]
